FAERS Safety Report 17439735 (Version 1)
Quarter: 2020Q1

REPORT INFORMATION
  Report Type: Spontaneous
  Country: RU (occurrence: RU)
  Receive Date: 20200220
  Receipt Date: 20200220
  Transmission Date: 20200409
  Serious: Yes (Other)
  Sender: FDA-Public Use
  Company Number: RU-TEVA-2020-RU-1186394

PATIENT
  Age: 62 Year
  Sex: Female
  Weight: 70 kg

DRUGS (1)
  1. CONVULSOFIN RETARD [Suspect]
     Active Substance: VALPROATE SODIUM
     Route: 048
     Dates: start: 20180310, end: 20180316

REACTIONS (3)
  - Epilepsy [Recovering/Resolving]
  - Loss of consciousness [Recovering/Resolving]
  - Urinary incontinence [Recovering/Resolving]

NARRATIVE: CASE EVENT DATE: 20180314
